FAERS Safety Report 9779845 (Version 1)
Quarter: 2013Q4

REPORT INFORMATION
  Report Type: Spontaneous
  Country: US (occurrence: US)
  Receive Date: 20131223
  Receipt Date: 20131223
  Transmission Date: 20140711
  Serious: No
  Sender: FDA-Public Use
  Company Number: US-ENDO PHARMACEUTICALS INC.-ZOLP20130032

PATIENT
  Age: 44 Year
  Sex: Female
  Weight: 74.91 kg

DRUGS (14)
  1. ZOLPIDEM TARTRATE TABLETS [Suspect]
     Indication: INSOMNIA
     Route: 048
  2. HYDROXYZINE [Suspect]
     Indication: ANXIETY
     Dates: start: 1997, end: 20130716
  3. HYDROXYZINE [Suspect]
     Indication: INSOMNIA
  4. CYMBALTA [Concomitant]
     Indication: MAJOR DEPRESSION
     Route: 048
     Dates: start: 2012
  5. CYMBALTA [Concomitant]
     Indication: POST-TRAUMATIC STRESS DISORDER
  6. CYMBALTA [Concomitant]
     Indication: OBSESSIVE-COMPULSIVE DISORDER
  7. CYMBALTA [Concomitant]
     Indication: PANIC DISORDER
  8. CYMBALTA [Concomitant]
     Indication: ANXIETY
  9. ABILIFY [Concomitant]
     Indication: MAJOR DEPRESSION
     Route: 048
  10. ABILIFY [Concomitant]
     Indication: POST-TRAUMATIC STRESS DISORDER
  11. ABILIFY [Concomitant]
     Indication: OBSESSIVE-COMPULSIVE DISORDER
  12. ABILIFY [Concomitant]
     Indication: PANIC DISORDER
  13. ABILIFY [Concomitant]
     Indication: ANXIETY
  14. TRAZODONE [Concomitant]
     Indication: INSOMNIA
     Route: 048

REACTIONS (1)
  - Drug screen positive [Unknown]
